FAERS Safety Report 10537678 (Version 4)
Quarter: 2014Q4

REPORT INFORMATION
  Report Type: Report from Study
  Country: US (occurrence: US)
  Receive Date: 20141023
  Receipt Date: 20141105
  Transmission Date: 20150529
  Serious: Yes (Life-Threatening, Hospitalization, Other)
  Sender: FDA-Public Use
  Company Number: PHEH2014US021157

PATIENT
  Age: 51 Year
  Sex: Male
  Weight: 79.37 kg

DRUGS (8)
  1. GILENYA [Suspect]
     Active Substance: FINGOLIMOD HYDROCHLORIDE
     Indication: RELAPSING-REMITTING MULTIPLE SCLEROSIS
     Dosage: 0.5 MG, QD
     Route: 048
     Dates: start: 20121114, end: 20141019
  2. PROVIGIL [Suspect]
     Active Substance: MODAFINIL
     Indication: MULTIPLE SCLEROSIS
     Dosage: 200 UKN, BID
     Route: 048
     Dates: start: 20121029
  3. NUEDEXTA [Suspect]
     Active Substance: DEXTROMETHORPHAN HYDROBROMIDE\QUINIDINE SULFATE
     Dosage: 20 MG, BID
     Route: 048
     Dates: start: 20130530
  4. NUEDEXTA [Suspect]
     Active Substance: DEXTROMETHORPHAN HYDROBROMIDE\QUINIDINE SULFATE
     Indication: MULTIPLE SCLEROSIS
     Dosage: 10 MG, BID
     Route: 048
  5. AMITRIPTYLINE [Suspect]
     Active Substance: AMITRIPTYLINE
     Indication: MULTIPLE SCLEROSIS
     Dosage: 10 MG, 2HS
     Route: 048
     Dates: start: 20130403
  6. KLONOPIN [Concomitant]
     Active Substance: CLONAZEPAM
     Indication: ANXIETY
     Dosage: 2 MG, UNK
     Route: 048
  7. PRILOSEC [Concomitant]
     Active Substance: OMEPRAZOLE MAGNESIUM
     Indication: GASTROOESOPHAGEAL REFLUX DISEASE
     Dosage: 40 MG, UNK
     Route: 048
  8. NEURONTIN [Concomitant]
     Active Substance: GABAPENTIN
     Dosage: 300 MG, TID
     Route: 048
     Dates: start: 20140201

REACTIONS (10)
  - Vomiting [Recovering/Resolving]
  - Ventricular fibrillation [Recovering/Resolving]
  - Dyspnoea [Recovering/Resolving]
  - Chest discomfort [Recovering/Resolving]
  - Nausea [Recovering/Resolving]
  - Hypotension [Unknown]
  - Acute myocardial infarction [Recovering/Resolving]
  - Cardiac arrest [Recovering/Resolving]
  - Angina pectoris [Recovering/Resolving]
  - Pallor [Recovering/Resolving]

NARRATIVE: CASE EVENT DATE: 20141019
